FAERS Safety Report 8157555-3 (Version None)
Quarter: 2012Q1

REPORT INFORMATION
  Report Type: 
  Country: None (occurrence: None)
  Receive Date: 20120222
  Receipt Date: 20110714
  Transmission Date: 20120608
  Serious: No
  Sender: FDA-Public Use
  Company Number: US-ASTRAZENECA-2011SE42279

PATIENT
  Age: 85 Year
  Sex: Female

DRUGS (2)
  1. TENORMIN [Suspect]
     Route: 048
     Dates: start: 20110601
  2. AMLODIPINE [Suspect]

REACTIONS (4)
  - FATIGUE [None]
  - ARTHRITIS [None]
  - IMPAIRED WORK ABILITY [None]
  - DIARRHOEA [None]
